FAERS Safety Report 6882196-5 (Version None)
Quarter: 2010Q3

REPORT INFORMATION
  Report Type: 
  Country: None (occurrence: None)
  Receive Date: 20100729
  Receipt Date: 20100722
  Transmission Date: 20110219
  Serious: Yes (Other)
  Sender: FDA-Public Use
  Company Number: US-SANOFI-AVENTIS-2010SA020545

PATIENT
  Age: 58 Year
  Sex: Male
  Weight: 100 kg

DRUGS (5)
  1. MULTAQ [Suspect]
     Indication: ATRIAL FIBRILLATION
     Route: 048
     Dates: start: 20100406, end: 20100409
  2. VICODIN [Concomitant]
     Indication: BACK PAIN
     Dosage: 7.5/750
     Dates: start: 20010101
  3. LISINOPRIL [Concomitant]
     Dates: start: 20051001
  4. HYDROCHLOROTHIAZIDE [Concomitant]
     Indication: HYPERTENSION
     Dates: start: 20051001
  5. PRAVASTATIN [Concomitant]
     Dates: start: 20080201

REACTIONS (6)
  - ABDOMINAL PAIN UPPER [None]
  - ATRIAL FLUTTER [None]
  - BACK PAIN [None]
  - CHROMATURIA [None]
  - DIARRHOEA [None]
  - HEART RATE DECREASED [None]
